FAERS Safety Report 10161999 (Version 5)
Quarter: 2016Q1

REPORT INFORMATION
  Report Type: Spontaneous
  Country: US (occurrence: US)
  Receive Date: 20140509
  Receipt Date: 20160330
  Transmission Date: 20160525
  Serious: Yes (Hospitalization, Disabling, Other)
  Sender: FDA-Public Use
  Company Number: US-009507513-1404USA015563

PATIENT
  Sex: Female

DRUGS (3)
  1. ACTONEL [Suspect]
     Active Substance: RISEDRONATE SODIUM
     Indication: OSTEOPOROSIS
     Dosage: 150 MG, QM
     Route: 048
     Dates: start: 2009, end: 2010
  2. FOSAMAX [Suspect]
     Active Substance: ALENDRONATE SODIUM
     Indication: OSTEOPOROSIS
     Dosage: 70 MG, QW
     Route: 048
     Dates: start: 1997, end: 2007
  3. BONIVA [Suspect]
     Active Substance: IBANDRONATE SODIUM
     Indication: OSTEOPOROSIS
     Dosage: 150 MG, QM
     Route: 048
     Dates: start: 2007, end: 2008

REACTIONS (16)
  - Haemorrhagic anaemia [Unknown]
  - Inflammatory bowel disease [Unknown]
  - Anxiety [Unknown]
  - Intestinal polyp [Unknown]
  - Impaired healing [Unknown]
  - Femur fracture [Unknown]
  - Low turnover osteopathy [Unknown]
  - Irritable bowel syndrome [Unknown]
  - Constipation [Unknown]
  - Fall [Unknown]
  - Joint effusion [Unknown]
  - Blood glucose increased [Unknown]
  - Oropharyngeal pain [Unknown]
  - Thrombocytopenia [Unknown]
  - Vitamin D decreased [Unknown]
  - Blood potassium decreased [Recovered/Resolved]

NARRATIVE: CASE EVENT DATE: 2011
